FAERS Safety Report 9278522 (Version 1)
Quarter: 2013Q2

REPORT INFORMATION
  Report Type: Spontaneous
  Country: US (occurrence: US)
  Receive Date: 20130507
  Receipt Date: 20130510
  Transmission Date: 20140414
  Serious: Yes (Other)
  Sender: FDA-Public Use
  Company Number: US-RB-053761-13

PATIENT
  Sex: Female

DRUGS (1)
  1. DELSYM ADULT GRAPE LIQUID [Suspect]
     Indication: PRODUCT USED FOR UNKNOWN INDICATION
     Dosage: TOOK TOTAL 2 DOSES ON 26-APR-2013.
     Route: 048
     Dates: start: 20130426

REACTIONS (5)
  - Tachycardia [Unknown]
  - Agitation [Not Recovered/Not Resolved]
  - Heart rate increased [Recovering/Resolving]
  - Feeling hot [Not Recovered/Not Resolved]
  - Epistaxis [Unknown]
